FAERS Safety Report 7595851-9 (Version None)
Quarter: 2011Q3

REPORT INFORMATION
  Report Type: 
  Country: None (occurrence: None)
  Receive Date: 20110707
  Receipt Date: 20110705
  Transmission Date: 20111222
  Serious: No
  Sender: FDA-Public Use
  Company Number: US-PFIZER INC-2011150115

PATIENT
  Sex: Male
  Weight: 99.773 kg

DRUGS (3)
  1. EFFEXOR XR [Suspect]
     Indication: DEPRESSION
     Dosage: 75 MG, DAILY
     Route: 048
     Dates: start: 20110101
  2. OXYCODONE [Concomitant]
     Indication: BACK PAIN
     Dosage: 30 MG, 4X/DAY
     Route: 048
  3. ACETAMINOPHEN [Concomitant]
     Indication: BACK PAIN
     Dosage: UNK
     Route: 048

REACTIONS (1)
  - ERECTILE DYSFUNCTION [None]
